FAERS Safety Report 8341710-3 (Version None)
Quarter: 2012Q2

REPORT INFORMATION
  Report Type: 
  Country: None (occurrence: None)
  Receive Date: 20120507
  Receipt Date: 20120417
  Transmission Date: 20120825
  Serious: Yes (Other)
  Sender: FDA-Public Use
  Company Number: GB-WATSON-2012-07427

PATIENT
  Age: 77 Year
  Sex: Female
  Weight: 51 kg

DRUGS (6)
  1. CALCICHEW D3 [Concomitant]
     Indication: OSTEOPOROSIS PROPHYLAXIS
     Dosage: 2 DOSAGE FORM, DAILY
     Route: 048
     Dates: start: 20070122
  2. MOVICOL                            /01625101/ [Concomitant]
     Indication: CONSTIPATION
     Dosage: 1 DOSAGE FORM, DAILY
     Route: 048
     Dates: start: 20110620, end: 20111001
  3. TIOTROPIUM BROMIDE [Concomitant]
     Indication: CHRONIC OBSTRUCTIVE PULMONARY DISEASE
     Dosage: UNK
     Route: 055
     Dates: start: 20070122
  4. CITALOPRAM HYDROBROMIDE [Suspect]
     Indication: DEPRESSION
     Dosage: UNK
     Route: 048
     Dates: start: 20110929, end: 20111012
  5. CANDESARTAN CILEXETIL [Concomitant]
     Indication: HYPERTENSION
     Dosage: 16 MG, UNKNOWN
     Route: 048
  6. ZOLPIDEM                           /00914902/ [Concomitant]
     Indication: SLEEP DISORDER
     Dosage: 5 MG, UNKNOWN
     Route: 048

REACTIONS (4)
  - SYNCOPE [None]
  - EPILEPSY [None]
  - CONVULSIVE THRESHOLD LOWERED [None]
  - GRAND MAL CONVULSION [None]
